FAERS Safety Report 15749702 (Version 1)
Quarter: 2018Q4

REPORT INFORMATION
  Report Type: Spontaneous
  Country: US (occurrence: US)
  Receive Date: 20181220
  Receipt Date: 20181220
  Transmission Date: 20190205
  Serious: Yes (Other)
  Sender: FDA-Public Use
  Company Number: None

PATIENT
  Age: 70 Year
  Sex: Male
  Weight: 73.1 kg

DRUGS (1)
  1. YESCARTA [Suspect]
     Active Substance: AXICABTAGENE CILOLEUCEL
     Indication: DIFFUSE LARGE B-CELL LYMPHOMA
     Dosage: ?          OTHER FREQUENCY:ONCE ON 9/19/2018;?
     Route: 041
     Dates: start: 20180919, end: 20180919

REACTIONS (5)
  - Cytokine release syndrome [None]
  - Asthenia [None]
  - Incontinence [None]
  - Neurological symptom [None]
  - Confusional state [None]

NARRATIVE: CASE EVENT DATE: 20180919
